FAERS Safety Report 16530103 (Version 1)
Quarter: 2019Q3

REPORT INFORMATION
  Report Type: Report from Study
  Country: None (occurrence: US)
  Receive Date: 20190704
  Receipt Date: 20190704
  Transmission Date: 20191004
  Serious: Yes (Other)
  Sender: FDA-Public Use
  Company Number: US-BIOVITRUM-2019US1729

PATIENT
  Sex: Female

DRUGS (5)
  1. LOVENOX [Concomitant]
     Active Substance: ENOXAPARIN SODIUM
  2. RANITIDINE. [Concomitant]
     Active Substance: RANITIDINE
  3. PREDNISOLONE. [Concomitant]
     Active Substance: PREDNISOLONE
  4. ASPIRIN. [Concomitant]
     Active Substance: ASPIRIN
  5. KINERET [Suspect]
     Active Substance: ANAKINRA
     Route: 058
     Dates: start: 20190518

REACTIONS (2)
  - Rash erythematous [Not Recovered/Not Resolved]
  - Haematochezia [Unknown]
